FAERS Safety Report 5851643-X (Version None)
Quarter: 2008Q3

REPORT INFORMATION
  Report Type: 
  Country: None (occurrence: None)
  Receive Date: 20080820
  Receipt Date: 20080811
  Transmission Date: 20090109
  Serious: Yes (Other)
  Sender: FDA-Public Use
  Company Number: NZ-ELI_LILLY_AND_COMPANY-NZ200808002344

PATIENT
  Age: 42 Year
  Sex: Female

DRUGS (1)
  1. HUMALOG [Suspect]
     Dosage: 2 - 6 UNITS DAILY
     Route: 065

REACTIONS (7)
  - CHEST PAIN [None]
  - DIZZINESS [None]
  - DYSPNOEA [None]
  - HEADACHE [None]
  - HYPOAESTHESIA [None]
  - PALPITATIONS [None]
  - THROAT TIGHTNESS [None]
